FAERS Safety Report 7366114-1 (Version None)
Quarter: 2011Q1

REPORT INFORMATION
  Report Type: 
  Country: None (occurrence: None)
  Receive Date: 20110322
  Receipt Date: 20091204
  Transmission Date: 20110831
  Serious: Yes (Death, Hospitalization, Other)
  Sender: FDA-Public Use
  Company Number: US-BAYER-201042013NA

PATIENT
  Sex: Female
  Weight: 170 kg

DRUGS (12)
  1. TRASYLOL [Suspect]
     Indication: TRICUSPID VALVE REPLACEMENT
  2. ALBUTEROL [Concomitant]
     Route: 042
  3. PROTAMINE SULFATE [Concomitant]
     Route: 042
  4. CARDIOPLEGIA [Concomitant]
     Dosage: 2500 ML, UNK
     Dates: start: 20061011
  5. FRESH FROZEN PLASMA [Concomitant]
     Dosage: 3 U, UNK
     Dates: start: 20061011
  6. METOPROLOL [Concomitant]
     Dosage: 25 MG, EVERY 12 HRS
     Route: 048
  7. LASIX [Concomitant]
     Indication: RENAL FAILURE
     Dosage: UNK
     Dates: start: 20061011
  8. BENADRYL [Concomitant]
     Route: 042
  9. TRASYLOL [Suspect]
     Indication: MITRAL VALVE REPLACEMENT
     Dosage: UNK
     Route: 042
     Dates: start: 20061011, end: 20061011
  10. HEPARIN [Concomitant]
     Route: 042
  11. ANTIBIOTICS [Concomitant]
     Indication: URINARY TRACT INFECTION
  12. PEPCID [Concomitant]
     Route: 042

REACTIONS (7)
  - CARDIOGENIC SHOCK [None]
  - RENAL FAILURE [None]
  - RENAL FAILURE ACUTE [None]
  - PULMONARY EMBOLISM [None]
  - INJURY [None]
  - RENAL INJURY [None]
  - PAIN [None]
